FAERS Safety Report 4827317-0 (Version None)
Quarter: 2005Q4

REPORT INFORMATION
  Report Type: 
  Country: None (occurrence: None)
  Receive Date: 20051110
  Receipt Date: 20051027
  Transmission Date: 20060501
  Serious: Yes (Life-Threatening)
  Sender: FDA-Public Use
  Company Number: PHHO2005JP14789

PATIENT
  Age: 78 Year
  Sex: Male
  Weight: 53.0255 kg

DRUGS (5)
  1. VISUDYNE [Suspect]
     Indication: MACULAR DEGENERATION
     Dosage: 4.6 ML DAILY IV
     Route: 042
     Dates: start: 20041110, end: 20041110
  2. CARNACULIN [Concomitant]
  3. CINAL [Concomitant]
  4. ANPLAG [Concomitant]
  5. CEFZON [Concomitant]

REACTIONS (1)
  - ACUTE MYOCARDIAL INFARCTION [None]
